FAERS Safety Report 4544669-X (Version None)
Quarter: 2004Q4

REPORT INFORMATION
  Report Type: 
  Country: None (occurrence: None)
  Receive Date: 20041230
  Receipt Date: 20041221
  Transmission Date: 20050328
  Serious: Yes (Other)
  Sender: FDA-Public Use
  Company Number: B0362898A

PATIENT
  Age: 46 Year
  Sex: Male

DRUGS (3)
  1. EPIVIR [Suspect]
     Indication: ANTIVIRAL PROPHYLAXIS
     Dosage: 100 MG PER DAY
     Dates: start: 20000221
  2. TACROLUMUS [Concomitant]
  3. PREDNISOLONE [Concomitant]

REACTIONS (4)
  - HEPATIC NEOPLASM MALIGNANT [None]
  - HEPATIC STEATOSIS [None]
  - HEPATITIS B [None]
  - LIVER TRANSPLANT [None]
